FAERS Safety Report 11294525 (Version 1)
Quarter: 2015Q3

REPORT INFORMATION
  Report Type: Spontaneous
  Country: US (occurrence: None)
  Receive Date: 20150721
  Receipt Date: 20150721
  Transmission Date: 20151125
  Serious: Yes (Life-Threatening, Hospitalization)
  Sender: FDA-Public Use
  Company Number: 2015-001459

PATIENT
  Age: 33 Year
  Sex: Female

DRUGS (1)
  1. LO LOESTRIN FE [Suspect]
     Active Substance: ETHINYL ESTRADIOL\NORETHINDRONE ACETATE
     Indication: CONTRACEPTION
     Dosage: 1 MG/10 MCG DAILY, ORAL
     Route: 048
     Dates: start: 20141202, end: 20141230

REACTIONS (6)
  - Loss of consciousness [None]
  - Cerebral haemorrhage [None]
  - Brain herniation [None]
  - Cerebral thrombosis [None]
  - Headache [None]
  - Computerised tomogram head abnormal [None]

NARRATIVE: CASE EVENT DATE: 20141227
